FAERS Safety Report 23984047 (Version 3)
Quarter: 2024Q3

REPORT INFORMATION
  Report Type: Spontaneous
  Country: DE (occurrence: DE)
  Receive Date: 20240618
  Receipt Date: 20240701
  Transmission Date: 20241017
  Serious: Yes (Other)
  Sender: ALK-ABELLO
  Company Number: DE-PEI-202400012473

PATIENT

DRUGS (2)
  1. ACARIZAX [Suspect]
     Active Substance: DERMATOPHAGOIDES FARINAE\DERMATOPHAGOIDES PTERONYSSINUS
     Indication: Mite allergy
     Dosage: UNK
     Route: 060
     Dates: start: 20240502, end: 20240530
  2. FLUTICASONE PROPIONATE\FORMOTEROL FUMARATE [Concomitant]
     Active Substance: FLUTICASONE PROPIONATE\FORMOTEROL FUMARATE
     Indication: Asthma
     Dosage: 125/5 ?G 2X1 HUB TGL.

REACTIONS (9)
  - Coating in mouth [Unknown]
  - Mouth swelling [Unknown]
  - Ischaemia [Unknown]
  - Seizure [Unknown]
  - Facial asymmetry [Unknown]
  - Diplopia [Unknown]
  - Swollen tongue [Unknown]
  - Glossodynia [Unknown]
  - Plicated tongue [Unknown]

NARRATIVE: CASE EVENT DATE: 20240516
